FAERS Safety Report 7996633-6 (Version None)
Quarter: 2011Q4

REPORT INFORMATION
  Report Type: 
  Country: None (occurrence: None)
  Receive Date: 20111221
  Receipt Date: 20111207
  Transmission Date: 20120403
  Serious: Yes (Other)
  Sender: FDA-Public Use
  Company Number: US-AMGEN-USASP2011065036

PATIENT
  Sex: Female

DRUGS (3)
  1. ADVAIR DISKUS 100/50 [Concomitant]
  2. SPIRIVA [Concomitant]
  3. XGEVA [Suspect]
     Indication: METASTASES TO BONE
     Dates: start: 20110101

REACTIONS (2)
  - DYSPNOEA [None]
  - WHEEZING [None]
